FAERS Safety Report 5761107-X (Version None)
Quarter: 2008Q2

REPORT INFORMATION
  Report Type: 
  Country: None (occurrence: None)
  Receive Date: 20080606
  Receipt Date: 20080525
  Transmission Date: 20081010
  Serious: Yes (Hospitalization)
  Sender: FDA-Public Use
  Company Number: HU-AVENTIS-200812533EU

PATIENT
  Sex: Female

DRUGS (1)
  1. TRENTAL [Suspect]

REACTIONS (3)
  - ANGIOPATHY [None]
  - DEEP VEIN THROMBOSIS [None]
  - PETECHIAE [None]
